FAERS Safety Report 8498801-6 (Version None)
Quarter: 2012Q3

REPORT INFORMATION
  Report Type: 
  Country: None (occurrence: None)
  Receive Date: 20120709
  Receipt Date: 20120625
  Transmission Date: 20120928
  Serious: Yes (Other)
  Sender: FDA-Public Use
  Company Number: NZ-ELI_LILLY_AND_COMPANY-NZ201206001029

PATIENT
  Age: 25 Year
  Sex: Male
  Weight: 96.7 kg

DRUGS (2)
  1. ZYPREXA RELPREVV [Suspect]
     Indication: SCHIZOPHRENIA, PARANOID TYPE
     Dosage: 300 MG, 2/M
     Dates: start: 20120419, end: 20120531
  2. ZYPREXA RELPREVV [Suspect]
     Dosage: 300 MG, 2/M
     Route: 030

REACTIONS (7)
  - ATAXIA [None]
  - DYSARTHRIA [None]
  - VISION BLURRED [None]
  - GAIT DISTURBANCE [None]
  - INFLUENZA [None]
  - SEDATION [None]
  - WEIGHT INCREASED [None]
